FAERS Safety Report 15188312 (Version 1)
Quarter: 2018Q3

REPORT INFORMATION
  Report Type: Report from Study
  Country: ES (occurrence: ES)
  Receive Date: 20180724
  Receipt Date: 20180724
  Transmission Date: 20181010
  Serious: Yes (Hospitalization)
  Sender: FDA-Public Use
  Company Number: ES-TEVA-2018-ES-879207

PATIENT
  Age: 32 Year
  Sex: Female

DRUGS (10)
  1. ACICLOVIR (201A) [Suspect]
     Active Substance: ACYCLOVIR
     Dosage: 750 MG
     Route: 042
     Dates: start: 20170519, end: 20170526
  2. ATAZANAVIR (ATAZANAVIR) [Suspect]
     Active Substance: ATAZANAVIR
     Route: 048
  3. SEPTRIM [Concomitant]
     Active Substance: SULFAMETHOXAZOLE\TRIMETHOPRIM
     Dosage: 1 U /12H
     Route: 048
  4. ENOXAPARINA (2482A) [Suspect]
     Active Substance: ENOXAPARIN
     Route: 065
     Dates: start: 20170422
  5. AMBISOME [Suspect]
     Active Substance: AMPHOTERICIN B
     Dosage: 300 MG DIA
     Route: 042
     Dates: start: 20170422, end: 20170524
  6. TRAMADOL. [Concomitant]
     Active Substance: TRAMADOL
     Dosage: 150 MG/8H
     Route: 042
     Dates: start: 20170516
  7. DEXAMETASONA [Concomitant]
     Active Substance: DEXAMETHASONE
     Dosage: 4 MG
     Route: 048
  8. FLUOROCITOSINA [Suspect]
     Active Substance: FLUCYTOSINE
     Dosage: 2000 MG/6H
     Route: 048
     Dates: start: 20170422
  9. RANITIDINA 300 [Concomitant]
     Dosage: 0?0?1
     Route: 048
  10. PARACETAMOL [Concomitant]
     Active Substance: ACETAMINOPHEN
     Dosage: 1 GR/8H
     Route: 042
     Dates: end: 20170516

REACTIONS (1)
  - Aplastic anaemia [Recovered/Resolved]

NARRATIVE: CASE EVENT DATE: 20170524
